FAERS Safety Report 4954176-8 (Version None)
Quarter: 2006Q1

REPORT INFORMATION
  Report Type: 
  Country: None (occurrence: None)
  Receive Date: 20060327
  Receipt Date: 20050829
  Transmission Date: 20060701
  Serious: Yes (Death, Hospitalization)
  Sender: FDA-Public Use
  Company Number: US-MERCK-0508USA04711

PATIENT
  Age: 68 Year
  Sex: Female
  Weight: 64 kg

DRUGS (7)
  1. VIOXX [Suspect]
     Indication: RHEUMATOID ARTHRITIS
     Route: 048
     Dates: start: 20040101, end: 20040101
  2. HYDROCHLOROTHIAZIDE [Concomitant]
     Route: 065
  3. DIAZEPAM [Concomitant]
     Route: 065
  4. FLEXERIL [Concomitant]
     Route: 065
  5. PLAQUENIL [Concomitant]
     Route: 065
  6. LOTREL [Concomitant]
     Route: 065
  7. REMICADE [Concomitant]
     Route: 065

REACTIONS (11)
  - BACK PAIN [None]
  - HERPES SIMPLEX [None]
  - HERPETIC STOMATITIS [None]
  - INTERSTITIAL LUNG DISEASE [None]
  - INTERVERTEBRAL DISC DISORDER [None]
  - LUMBAR RADICULOPATHY [None]
  - PAIN IN EXTREMITY [None]
  - PULMONARY EMBOLISM [None]
  - RESPIRATORY FAILURE [None]
  - SPINAL COLUMN STENOSIS [None]
  - TACHYCARDIA [None]
